FAERS Safety Report 10662126 (Version 2)
Quarter: 2014Q4

REPORT INFORMATION
  Report Type: Spontaneous
  Country: US (occurrence: US)
  Receive Date: 20141218
  Receipt Date: 20141222
  Transmission Date: 20150529
  Serious: No
  Sender: FDA-Public Use
  Company Number: US-PFIZER INC-2014343705

PATIENT
  Age: 63 Year
  Sex: Female
  Weight: 66 kg

DRUGS (14)
  1. OMEPRAZOLE DR [Concomitant]
     Active Substance: OMEPRAZOLE
     Indication: DYSPEPSIA
     Dosage: 40 MG, 1X/DAY
  2. HYDROCHLOROTHIAZIDE. [Concomitant]
     Active Substance: HYDROCHLOROTHIAZIDE
     Indication: BLOOD PRESSURE
     Dosage: 12.5 MG, 1X/DAY
  3. DICLOFENAC [Concomitant]
     Active Substance: DICLOFENAC
     Indication: ARTHRITIS
     Dosage: 50 MG, 3X/DAY
  4. TRAMADOL [Concomitant]
     Active Substance: TRAMADOL
     Indication: PAIN
     Dosage: 100 MG (50 MG TWO TABLETS), AS NEEDED
  5. LYRICA [Suspect]
     Active Substance: PREGABALIN
     Dosage: 150 MG, 1X/DAY
  6. OMEPRAZOLE DR [Concomitant]
     Active Substance: OMEPRAZOLE
     Indication: GASTRIC DISORDER
  7. SIMVASTATIN. [Concomitant]
     Active Substance: SIMVASTATIN
     Indication: BLOOD CHOLESTEROL ABNORMAL
     Dosage: 80 MG, 1X/DAY
  8. DICLOFENAC [Concomitant]
     Active Substance: DICLOFENAC
     Indication: ARTHRALGIA
  9. LYRICA [Suspect]
     Active Substance: PREGABALIN
     Indication: SPINAL COLUMN STENOSIS
     Dosage: 75 MG, 3X/DAY
  10. HYDROXYZINE HCL [Concomitant]
     Active Substance: HYDROXYZINE HYDROCHLORIDE
     Indication: HYPERSENSITIVITY
     Dosage: 25 MG, AS NEEDED
  11. PREMPRO [Concomitant]
     Active Substance: ESTROGENS, CONJUGATED\MEDROXYPROGESTERONE ACETATE
     Indication: HOT FLUSH
     Dosage: [ESTROGENS CONJUGATED 0.45]/[MEDROXYPROGESTERONE ACETATE 1.5], UNK
  12. OXYCOD ACETAMIN [Concomitant]
     Indication: PAIN
     Dosage: [OXYCODONE 5MG]/[PARACETAMOL 325MG], AS NEEDED
  13. METOPROLOL CR [Concomitant]
     Indication: HEART RATE IRREGULAR
     Dosage: 25 MG (HALF A TABLET), UNK
  14. DIAZEPAM. [Concomitant]
     Active Substance: DIAZEPAM
     Indication: MUSCLE SPASMS
     Dosage: 10 MG (5 MG TWO TABLETS) DAILY AS NEEDED

REACTIONS (2)
  - Back pain [Unknown]
  - Body height decreased [Unknown]
